FAERS Safety Report 18999232 (Version 3)
Quarter: 2021Q2

REPORT INFORMATION
  Report Type: Report from Study
  Country: None (occurrence: CA)
  Receive Date: 20210312
  Receipt Date: 20210424
  Transmission Date: 20210717
  Serious: Yes (Hospitalization, Other)
  Sender: FDA-Public Use
  Company Number: CA-ABBVIE-21K-028-3809756-00

PATIENT
  Age: 80 Year
  Sex: Male

DRUGS (1)
  1. HUMIRA [Suspect]
     Active Substance: ADALIMUMAB
     Indication: CROHN^S DISEASE
     Route: 058
     Dates: start: 20170106

REACTIONS (13)
  - Flatulence [Unknown]
  - Diverticular perforation [Recovering/Resolving]
  - Diverticulitis [Recovering/Resolving]
  - Computerised tomogram abnormal [Unknown]
  - Crohn^s disease [Unknown]
  - Peripheral swelling [Unknown]
  - Venous thrombosis [Unknown]
  - Thrombophlebitis superficial [Unknown]
  - Gastroenterostomy [Unknown]
  - Tenderness [Unknown]
  - Gastrointestinal wall thickening [Unknown]
  - Diverticulum intestinal [Recovering/Resolving]
  - Mesenteritis [Unknown]

NARRATIVE: CASE EVENT DATE: 202103
